FAERS Safety Report 4635745-1 (Version None)
Quarter: 2005Q2

REPORT INFORMATION
  Report Type: 
  Country: None (occurrence: None)
  Receive Date: 20050414
  Receipt Date: 20050329
  Transmission Date: 20051028
  Serious: Yes (Death, Hospitalization)
  Sender: FDA-Public Use
  Company Number: RENA-11168

PATIENT
  Age: 71 Year
  Sex: Male
  Weight: 40.9 kg

DRUGS (13)
  1. RENAGEL [Suspect]
     Indication: HYPERPHOSPHATAEMIA
     Dosage: 0.75 G DAILY PO
     Route: 048
     Dates: start: 20040628, end: 20040826
  2. BENIDIPINE HYDROCHLORIDE [Concomitant]
  3. ZOPICLONE [Concomitant]
  4. HYDROXYZINE HYDROCHLORIDE [Concomitant]
  5. MILNACIPRAN HYDROCHLORIDE [Concomitant]
  6. MOSAPRIDE CITRATE [Concomitant]
  7. CALCIUM CARBONATE [Concomitant]
  8. NICORANDIL [Concomitant]
  9. ACETYL SALICYLIC ACID USP BAT [Concomitant]
  10. AMEZINIUM METILSULFATE [Concomitant]
  11. DROXIDOPA [Concomitant]
  12. SENNOSIDE A+B [Concomitant]
  13. ISOSORBIDE DINITRATE [Concomitant]

REACTIONS (8)
  - ANAEMIA [None]
  - ASTHENIA [None]
  - CARDIAC ARREST [None]
  - DIARRHOEA [None]
  - ENTERITIS [None]
  - HYPOPROTEINAEMIA [None]
  - INTESTINAL OBSTRUCTION [None]
  - PYREXIA [None]
